FAERS Safety Report 18866061 (Version 1)
Quarter: 2021Q1

REPORT INFORMATION
  Report Type: Report from Study
  Country: US (occurrence: US)
  Receive Date: 20210209
  Receipt Date: 20210209
  Transmission Date: 20210420
  Serious: Yes (Other)
  Sender: FDA-Public Use
  Company Number: US-GLAXOSMITHKLINE-US2020AMR068720

PATIENT
  Sex: Female

DRUGS (7)
  1. NIRAPARIB [Suspect]
     Active Substance: NIRAPARIB
     Dosage: UNK(100MG ALT W/200MG)
     Dates: start: 202008
  2. NIRAPARIB [Suspect]
     Active Substance: NIRAPARIB
     Dosage: 100 MG, QD
  3. NIRAPARIB [Suspect]
     Active Substance: NIRAPARIB
     Dosage: UNK, QOD,(100 MG ALTERNATING WITH 200MG EVERY OTHER DAY)
  4. NIRAPARIB [Suspect]
     Active Substance: NIRAPARIB
     Dosage: 100 MG, QD
  5. NIRAPARIB [Suspect]
     Active Substance: NIRAPARIB
     Indication: OVARIAN CANCER
     Dosage: 200 MG, QD
     Dates: start: 20200410
  6. NIRAPARIB [Suspect]
     Active Substance: NIRAPARIB
     Dosage: 100 MG, QD
     Dates: start: 20200521
  7. NIRAPARIB [Suspect]
     Active Substance: NIRAPARIB
     Dosage: UNK (100MG ALT W/200MG)
     Dates: start: 20200830

REACTIONS (14)
  - Blood pressure increased [Recovered/Resolved]
  - Blood glucose increased [Not Recovered/Not Resolved]
  - Thrombocytopenia [Unknown]
  - Glycosylated haemoglobin increased [Unknown]
  - Tremor [Unknown]
  - Insomnia [Unknown]
  - Product dose omission issue [Unknown]
  - Peripheral swelling [Unknown]
  - Cataract [Recovering/Resolving]
  - Platelet count decreased [Not Recovered/Not Resolved]
  - Carbohydrate antigen 125 increased [Unknown]
  - Red blood cell count decreased [Unknown]
  - Restlessness [Unknown]
  - Off label use [Unknown]
